FAERS Safety Report 6631692-4 (Version None)
Quarter: 2010Q1

REPORT INFORMATION
  Report Type: 
  Country: None (occurrence: None)
  Receive Date: 20100312
  Receipt Date: 20100309
  Transmission Date: 20100710
  Serious: Yes (Death)
  Sender: FDA-Public Use
  Company Number: PHEH2010US02987

PATIENT
  Age: 68 Year
  Sex: Female

DRUGS (1)
  1. EXJADE [Suspect]
     Dosage: 2000 MG DAILY
     Route: 048
     Dates: start: 20080818

REACTIONS (1)
  - MYELODYSPLASTIC SYNDROME [None]
